FAERS Safety Report 23250342 (Version 1)
Quarter: 2023Q4

REPORT INFORMATION
  Report Type: Spontaneous
  Country: FR (occurrence: None)
  Receive Date: 20231201
  Receipt Date: 20231201
  Transmission Date: 20240109
  Serious: Yes (Other)
  Sender: FDA-Public Use
  Company Number: 2023A270364

PATIENT
  Age: 66 Year
  Sex: Female

DRUGS (3)
  1. OSIMERTINIB [Suspect]
     Active Substance: OSIMERTINIB
     Dosage: 80.0MG UNKNOWN
     Route: 048
  2. OSIMERTINIB [Suspect]
     Active Substance: OSIMERTINIB
     Dosage: 40.0MG UNKNOWN
     Route: 048
  3. OSIMERTINIB [Suspect]
     Active Substance: OSIMERTINIB
     Dosage: 160.0MG UNKNOWN
     Route: 048

REACTIONS (6)
  - Disease progression [Unknown]
  - Liver injury [Unknown]
  - Metastases to liver [Unknown]
  - Neutropenia [Unknown]
  - General physical health deterioration [Unknown]
  - Off label use [Unknown]
